FAERS Safety Report 23465343 (Version 1)
Quarter: 2024Q1

REPORT INFORMATION
  Report Type: Spontaneous
  Country: US (occurrence: None)
  Receive Date: 20240131
  Receipt Date: 20240131
  Transmission Date: 20240410
  Serious: Yes (Death)
  Sender: FDA-Public Use
  Company Number: None

PATIENT
  Age: 86 Year
  Sex: Male

DRUGS (2)
  1. ABIRATERONE ACETATE [Suspect]
     Active Substance: ABIRATERONE ACETATE
     Indication: Prostate cancer
     Dosage: 250MG EVERY DAY?
     Route: 048
     Dates: start: 202303
  2. LYNPARZA [Concomitant]
     Active Substance: OLAPARIB

REACTIONS (1)
  - Death [None]

NARRATIVE: CASE EVENT DATE: 20240124
